FAERS Safety Report 12145071 (Version 3)
Quarter: 2016Q1

REPORT INFORMATION
  Report Type: Spontaneous
  Country: KR (occurrence: KR)
  Receive Date: 20160304
  Receipt Date: 20160330
  Transmission Date: 20160526
  Serious: Yes (Hospitalization, Other)
  Sender: FDA-Public Use
  Company Number: KR-AMGEN-KORCT2016026493

PATIENT
  Age: 57 Year
  Sex: Female
  Weight: 48.6 kg

DRUGS (32)
  1. NEULASTA [Suspect]
     Active Substance: PEGFILGRASTIM
     Dosage: 6 MG, Q3WK
     Route: 058
     Dates: start: 20151014
  2. CYCLOPHOSPHAMIDE. [Concomitant]
     Active Substance: CYCLOPHOSPHAMIDE
     Dosage: 680 MG, UNK
     Route: 042
     Dates: start: 20150922, end: 20150922
  3. ACECLOFENAC [Concomitant]
     Active Substance: ACECLOFENAC
     Dosage: 200 MG, UNK
     Route: 048
     Dates: start: 20150811
  4. DOXORUBICIN [Concomitant]
     Active Substance: DOXORUBICIN
     Dosage: 65 MG, UNK
     Route: 042
     Dates: start: 20151013, end: 20151013
  5. METOCLOPRAMIDE. [Concomitant]
     Active Substance: METOCLOPRAMIDE
     Dosage: 15 MG, UNK
     Route: 048
     Dates: start: 20150811
  6. ZOLPIDEM [Concomitant]
     Active Substance: ZOLPIDEM\ZOLPIDEM TARTRATE
     Dosage: 6.25 MG, UNK
     Route: 048
     Dates: start: 20150902
  7. DOXORUBICIN [Concomitant]
     Active Substance: DOXORUBICIN
     Dosage: 68 MG, UNK
     Route: 042
     Dates: start: 20150810, end: 20150810
  8. DOXORUBICIN [Concomitant]
     Active Substance: DOXORUBICIN
     Dosage: 65 MG, UNK
     Route: 042
     Dates: start: 20150831, end: 20150831
  9. CYCLOPHOSPHAMIDE. [Concomitant]
     Active Substance: CYCLOPHOSPHAMIDE
     Dosage: 680 MG, UNK
     Route: 042
     Dates: start: 20150810, end: 20150810
  10. DUPHALAC [Concomitant]
     Active Substance: LACTULOSE
     Dosage: 15 ML, UNK
     Route: 048
     Dates: start: 20150924
  11. NEULASTA [Suspect]
     Active Substance: PEGFILGRASTIM
     Dosage: 6 MG, Q3WK
     Route: 058
     Dates: start: 20150901
  12. NEULASTA [Suspect]
     Active Substance: PEGFILGRASTIM
     Dosage: 6 MG, Q3WK
     Route: 058
     Dates: start: 20150923
  13. DOCETAXEL. [Concomitant]
     Active Substance: DOCETAXEL
     Dosage: 102 MG, UNK
     Route: 042
     Dates: start: 20150831, end: 20150831
  14. DOCETAXEL. [Concomitant]
     Active Substance: DOCETAXEL
     Dosage: 81.6 MG, UNK
     Route: 042
     Dates: start: 20151013, end: 20151013
  15. DOXORUBICIN [Concomitant]
     Active Substance: DOXORUBICIN
     Dosage: UNK
  16. CYCLOPHOSPHAMIDE. [Concomitant]
     Active Substance: CYCLOPHOSPHAMIDE
     Dosage: 680 MG, UNK
     Route: 042
     Dates: start: 20150831, end: 20150831
  17. CYCLOPHOSPHAMIDE. [Concomitant]
     Active Substance: CYCLOPHOSPHAMIDE
     Dosage: 680 MG, UNK
     Route: 042
     Dates: start: 20151013, end: 20151013
  18. DEXAMETHASONE. [Concomitant]
     Active Substance: DEXAMETHASONE
     Dosage: 1.5 MG, UNK
     Route: 048
     Dates: start: 20150812, end: 20150813
  19. CIPROFLOXACIN. [Concomitant]
     Active Substance: CIPROFLOXACIN
     Dosage: 500 MG, UNK
     Route: 048
     Dates: start: 20150929, end: 20151001
  20. MEGESTROL [Concomitant]
     Active Substance: MEGESTROL
     Dosage: 10 ML, UNK
     Route: 048
     Dates: start: 20150819, end: 20150829
  21. MAGNESIUM OXIDE. [Concomitant]
     Active Substance: MAGNESIUM OXIDE
     Dosage: 1500 MG, UNK
     Route: 048
     Dates: start: 20150929
  22. NEULASTA [Suspect]
     Active Substance: PEGFILGRASTIM
     Indication: FEBRILE NEUTROPENIA
     Dosage: 6 MG, Q3WK
     Route: 058
     Dates: start: 20150811
  23. DOCETAXEL. [Concomitant]
     Active Substance: DOCETAXEL
     Dosage: 102 MG, UNK
     Route: 042
     Dates: start: 20150810, end: 20150810
  24. DOCETAXEL. [Concomitant]
     Active Substance: DOCETAXEL
     Dosage: UNK
  25. DOXORUBICIN [Concomitant]
     Active Substance: DOXORUBICIN
     Dosage: 65 MG, UNK
     Route: 042
     Dates: start: 20150922, end: 20150922
  26. GLAMIN                             /01909901/ [Concomitant]
     Dosage: 500 ML, UNK
     Route: 048
     Dates: start: 20150930, end: 20150930
  27. DOCETAXEL. [Concomitant]
     Active Substance: DOCETAXEL
     Dosage: 81.6 MG, UNK
     Route: 042
     Dates: start: 20150922, end: 20150922
  28. GASMOTIN [Concomitant]
     Active Substance: MOSAPRIDE CITRATE
     Dosage: 15 MG, UNK
     Route: 048
     Dates: start: 20150811
  29. CIPROFLOXACIN. [Concomitant]
     Active Substance: CIPROFLOXACIN
     Dosage: 500 MG, UNK
     Route: 048
     Dates: start: 20150817, end: 20150819
  30. CIPROFLOXACIN. [Concomitant]
     Active Substance: CIPROFLOXACIN
     Dosage: 800 MG, UNK
     Route: 042
     Dates: start: 20150817, end: 20150819
  31. CIPROFLOXACIN. [Concomitant]
     Active Substance: CIPROFLOXACIN
     Dosage: 500 MG, UNK
     Route: 048
     Dates: start: 20150929, end: 20151001
  32. PANTOLOC                           /01263204/ [Concomitant]
     Active Substance: PANTOPRAZOLE SODIUM
     Dosage: 40 MG, UNK
     Route: 048
     Dates: start: 20150817, end: 20150819

REACTIONS (4)
  - Neutropenia [Recovered/Resolved]
  - Neutropenia [Recovered/Resolved]
  - Neutropenia [Recovered/Resolved]
  - Neutropenia [Recovered/Resolved]

NARRATIVE: CASE EVENT DATE: 20150817
